FAERS Safety Report 7198683-9 (Version None)
Quarter: 2010Q4

REPORT INFORMATION
  Report Type: 
  Country: None (occurrence: None)
  Receive Date: 20101227
  Receipt Date: 20101216
  Transmission Date: 20110411
  Serious: Yes (Hospitalization)
  Sender: FDA-Public Use
  Company Number: US-JNJFOC-20101005306

PATIENT
  Sex: Female
  Weight: 81.65 kg

DRUGS (9)
  1. REMICADE [Suspect]
     Indication: PSORIATIC ARTHROPATHY
     Route: 042
  2. REMICADE [Suspect]
     Route: 042
  3. REMICADE [Suspect]
     Route: 042
  4. LISINOPRIL [Concomitant]
     Indication: HYPERTENSION
  5. LISINOPRIL AND HYDROCHLOROTHIAZIDE [Concomitant]
     Indication: HYPERTENSION
  6. ATENOLOL [Concomitant]
     Indication: HYPERTENSION
  7. PERCOCET [Concomitant]
     Indication: PAIN
  8. SOLU-MEDROL [Concomitant]
     Indication: PREMEDICATION
     Route: 042
  9. BENADRYL [Concomitant]
     Indication: PREMEDICATION
     Route: 042

REACTIONS (8)
  - CHEST DISCOMFORT [None]
  - CYANOSIS [None]
  - HYPERTENSION [None]
  - INFUSION RELATED REACTION [None]
  - MUSCLE SPASMS [None]
  - PAIN [None]
  - RASH GENERALISED [None]
  - THROAT TIGHTNESS [None]
